FAERS Safety Report 19410527 (Version 1)
Quarter: 2021Q2

REPORT INFORMATION
  Report Type: Spontaneous
  Country: KR (occurrence: KR)
  Receive Date: 20210614
  Receipt Date: 20210614
  Transmission Date: 20210717
  Serious: Yes (Death, Other)
  Sender: FDA-Public Use
  Company Number: KR-CELLTRION INC.-2021KR007926

PATIENT

DRUGS (10)
  1. DOXORUBICIN [Suspect]
     Active Substance: DOXORUBICIN
     Indication: PARANEOPLASTIC PEMPHIGUS
     Dosage: 6 CYCLES
  2. RITUXIMAB (UNKNOWN) [Suspect]
     Active Substance: RITUXIMAB
     Indication: FOLLICULAR LYMPHOMA STAGE IV
  3. CYCLOPHOSPHAMIDE. [Suspect]
     Active Substance: CYCLOPHOSPHAMIDE
     Indication: FOLLICULAR LYMPHOMA STAGE IV
  4. CYCLOPHOSPHAMIDE. [Suspect]
     Active Substance: CYCLOPHOSPHAMIDE
     Indication: PARANEOPLASTIC PEMPHIGUS
     Dosage: 6 CYCLES
  5. VINCRISTINE [Suspect]
     Active Substance: VINCRISTINE
     Indication: FOLLICULAR LYMPHOMA STAGE IV
  6. DOXORUBICIN [Suspect]
     Active Substance: DOXORUBICIN
     Indication: FOLLICULAR LYMPHOMA STAGE IV
  7. VINCRISTINE [Suspect]
     Active Substance: VINCRISTINE
     Indication: PARANEOPLASTIC PEMPHIGUS
     Dosage: 6 CYCLES
  8. PREDNISOLONE. [Suspect]
     Active Substance: PREDNISOLONE
     Indication: FOLLICULAR LYMPHOMA STAGE IV
  9. RITUXIMAB (UNKNOWN) [Suspect]
     Active Substance: RITUXIMAB
     Indication: PARANEOPLASTIC PEMPHIGUS
     Dosage: 6 CYCLES
  10. PREDNISOLONE. [Suspect]
     Active Substance: PREDNISOLONE
     Indication: PARANEOPLASTIC PEMPHIGUS
     Dosage: 6 CYCLES

REACTIONS (4)
  - Off label use [Unknown]
  - Bronchopulmonary aspergillosis [Unknown]
  - Respiratory failure [Fatal]
  - Obliterative bronchiolitis [Unknown]
